FAERS Safety Report 4865074-2 (Version None)
Quarter: 2005Q4

REPORT INFORMATION
  Report Type: 
  Country: None (occurrence: None)
  Receive Date: 20051223
  Receipt Date: 20051215
  Transmission Date: 20060501
  Serious: Yes (Other)
  Sender: FDA-Public Use
  Company Number: AU-AMGEN-US161732

PATIENT
  Age: 50 Year
  Sex: Male
  Weight: 114 kg

DRUGS (12)
  1. KEPIVANCE [Suspect]
     Indication: MUCOSAL INFLAMMATION
     Route: 042
     Dates: start: 20050916, end: 20050922
  2. METOCLOPRAMIDE [Concomitant]
     Dates: start: 20050921
  3. NAVOBAN [Concomitant]
     Route: 042
     Dates: start: 20050920, end: 20050923
  4. DEXAMETHASONE [Concomitant]
     Route: 042
     Dates: start: 20050920
  5. PARACETAMOL [Concomitant]
     Route: 048
  6. FELODIPINE [Concomitant]
     Route: 048
  7. AVAPRO [Concomitant]
     Route: 048
  8. VENTOLIN [Concomitant]
     Route: 055
  9. SOMAC [Concomitant]
     Route: 048
     Dates: start: 20050921
  10. ATIVAN [Concomitant]
     Dates: start: 20050921
  11. MELPHALAN [Concomitant]
     Route: 042
     Dates: start: 20050920
  12. BUDESONIDE [Concomitant]
     Route: 055

REACTIONS (7)
  - ANAPHYLACTIC REACTION [None]
  - DYSPNOEA [None]
  - FACE OEDEMA [None]
  - OEDEMA PERIPHERAL [None]
  - PHARYNGEAL OEDEMA [None]
  - THROAT TIGHTNESS [None]
  - TONGUE OEDEMA [None]
